FAERS Safety Report 12453294 (Version 1)
Quarter: 2016Q2

REPORT INFORMATION
  Report Type: Spontaneous
  Country: US (occurrence: US)
  Receive Date: 20160609
  Receipt Date: 20160609
  Transmission Date: 20160815
  Serious: Yes (Hospitalization)
  Sender: FDA-Public Use
  Company Number: US-MYLANLABS-2016M1023930

PATIENT

DRUGS (1)
  1. CISPLATIN. [Suspect]
     Active Substance: CISPLATIN
     Indication: SQUAMOUS CELL CARCINOMA OF HEAD AND NECK
     Dosage: LATER ON, IT WAS SWITCHED TO WEEKLY ADMINISTRATION

REACTIONS (3)
  - Xanthogranuloma [Recovered/Resolved]
  - Vomiting [Unknown]
  - Nausea [Unknown]
